FAERS Safety Report 7574930 (Version 4)
Quarter: 2013Q2

REPORT INFORMATION
  Report Type: Report from Study
  Country: MX (occurrence: MX)
  Receive Date: 20100907
  Receipt Date: 20130418
  Transmission Date: 20140414
  Serious: Yes (Death, Hospitalization)
  Sender: FDA-Public Use
  Company Number: PHHO2010MX13465

PATIENT
  Age: 57 Year
  Sex: Male
  Weight: 55 kg

DRUGS (2)
  1. AFINITOR [Suspect]
     Indication: METASTATIC RENAL CELL CARCINOMA
     Dosage: 10 MG, UNK
     Route: 048
     Dates: start: 20100721, end: 20100725
  2. AFINITOR [Suspect]
     Dosage: 5 MG, DAILY
     Route: 048
     Dates: start: 20100813, end: 20100830

REACTIONS (16)
  - Dehydration [Fatal]
  - Renal failure [Fatal]
  - Pyrexia [Fatal]
  - Lethargy [Fatal]
  - Confusional state [Fatal]
  - Urine output decreased [Fatal]
  - Dysuria [Fatal]
  - Asthenia [Fatal]
  - Electrolyte imbalance [Fatal]
  - Oedema [Fatal]
  - General physical health deterioration [Fatal]
  - Azotaemia [Fatal]
  - Diarrhoea [Recovered/Resolved]
  - Malignant neoplasm progression [Fatal]
  - Multi-organ failure [Fatal]
  - Anaemia [Unknown]
